FAERS Safety Report 9752290 (Version 2)
Quarter: 2014Q1

REPORT INFORMATION
  Report Type: Report from Study
  Country: DE (occurrence: DE)
  Receive Date: 20131213
  Receipt Date: 20140218
  Transmission Date: 20141002
  Serious: Yes (Hospitalization, Other)
  Sender: FDA-Public Use
  Company Number: DE-ROCHE-1314979

PATIENT
  Age: 47 Year
  Sex: Female

DRUGS (12)
  1. TOCILIZUMAB [Suspect]
     Indication: RHEUMATOID ARTHRITIS
     Route: 065
     Dates: start: 200908, end: 201002
  2. TOCILIZUMAB [Suspect]
     Route: 065
     Dates: start: 201012
  3. TOCILIZUMAB [Suspect]
     Route: 065
  4. TOCILIZUMAB [Suspect]
     Route: 065
  5. METHOTREXATE [Concomitant]
     Route: 065
     Dates: start: 201106
  6. METHOTREXATE [Concomitant]
     Route: 065
     Dates: start: 200504
  7. AMLODIPIN [Concomitant]
     Indication: HYPERTENSION
     Route: 065
  8. TRAMADOL [Concomitant]
     Route: 065
  9. LOSARTAN [Concomitant]
     Route: 065
  10. ASS [Concomitant]
     Route: 065
  11. NOVALGIN (GERMANY) [Concomitant]
     Route: 065
  12. SULFONA [Concomitant]

REACTIONS (4)
  - Ischaemic stroke [Recovering/Resolving]
  - Pneumonia [Recovered/Resolved]
  - Fibromuscular dysplasia [Unknown]
  - Vertebral artery stenosis [Unknown]
